FAERS Safety Report 9513182 (Version 1)
Quarter: 2013Q3

REPORT INFORMATION
  Report Type: Spontaneous
  Country: CH (occurrence: CH)
  Receive Date: 20130910
  Receipt Date: 20130910
  Transmission Date: 20140515
  Serious: Yes (Other)
  Sender: FDA-Public Use
  Company Number: CH-PFIZER INC-2013256592

PATIENT
  Age: 30 Year
  Sex: Female

DRUGS (5)
  1. TEMESTA [Suspect]
     Dosage: 2.5 MG, 4X/DAY
     Route: 048
  2. LYRICA [Interacting]
     Dosage: UNK
     Route: 048
  3. ZOLOFT [Interacting]
     Route: 048
  4. SIRDALUD [Concomitant]
  5. NOVALGIN [Concomitant]
     Route: 048

REACTIONS (7)
  - Expired drug administered [Unknown]
  - Drug interaction [Unknown]
  - Off label use [Unknown]
  - Nausea [Unknown]
  - Lacrimation increased [Unknown]
  - Visual acuity reduced [Unknown]
  - Dizziness [Unknown]
